FAERS Safety Report 9928031 (Version 2)
Quarter: 2014Q1

REPORT INFORMATION
  Report Type: Report from Study
  Country: AU (occurrence: AU)
  Receive Date: 20140227
  Receipt Date: 20140304
  Transmission Date: 20141002
  Serious: Yes (Death)
  Sender: FDA-Public Use
  Company Number: AU-ROCHE-1355576

PATIENT
  Age: 87 Year
  Sex: Male

DRUGS (6)
  1. RANIBIZUMAB [Suspect]
     Indication: PRODUCT USED FOR UNKNOWN INDICATION
     Route: 065
     Dates: start: 20111117
  2. RANIBIZUMAB [Suspect]
     Dosage: LAST DOSE PRIOR TO SAE:03/JAN/2014
     Route: 065
     Dates: start: 20140103, end: 20140218
  3. CARVEDILOL [Concomitant]
     Indication: CARDIAC FAILURE CONGESTIVE
     Route: 065
  4. COPLAVIX [Concomitant]
     Indication: CARDIAC FAILURE CONGESTIVE
  5. FRUSEMIDE [Concomitant]
     Indication: CARDIAC FAILURE CONGESTIVE
  6. NITROLINGUAL [Concomitant]
     Indication: ANGINA PECTORIS

REACTIONS (1)
  - Cardiac arrest [Fatal]
